FAERS Safety Report 8991527 (Version 1)
Quarter: 2012Q4

REPORT INFORMATION
  Report Type: 
  Country: SE (occurrence: SE)
  Receive Date: 20121231
  Receipt Date: 20121231
  Transmission Date: 20130627
  Serious: Yes (Death, Hospitalization)
  Sender: FDA-Public Use
  Company Number: SE-RANBAXY-2012US-63667

PATIENT
  Age: 80 Year
  Sex: Female

DRUGS (4)
  1. PARACETAMOL [Suspect]
     Indication: PRODUCT USED FOR UNKNOWN INDICATION
     Dosage: 3 g daily
     Route: 065
  2. PARACETAMOL [Interacting]
     Indication: PRODUCT USED FOR UNKNOWN INDICATION
     Dosage: 650 mg, prn
     Route: 065
  3. PROPOXYPHENE [Interacting]
     Indication: PRODUCT USED FOR UNKNOWN INDICATION
     Dosage: 65 mg, prn
     Route: 065
  4. WARFARIN [Suspect]
     Indication: DEEP VEIN THROMBOSIS
     Dosage: UNK
     Route: 065

REACTIONS (2)
  - Cerebral haemorrhage [Fatal]
  - Drug interaction [Fatal]
